FAERS Safety Report 8475659-2 (Version None)
Quarter: 2012Q2

REPORT INFORMATION
  Report Type: 
  Country: None (occurrence: None)
  Receive Date: 20120628
  Receipt Date: 20120616
  Transmission Date: 20120825
  Serious: Yes (Other)
  Sender: FDA-Public Use
  Company Number: IT-ROCHE-1079248

PATIENT
  Sex: Male

DRUGS (1)
  1. MABTHERA [Suspect]
     Indication: B-CELL SMALL LYMPHOCYTIC LYMPHOMA STAGE IV
     Dates: start: 20120412, end: 20120508

REACTIONS (1)
  - SYNCOPE [None]
